FAERS Safety Report 10999100 (Version 1)
Quarter: 2015Q2

REPORT INFORMATION
  Report Type: Spontaneous
  Country: US (occurrence: US)
  Receive Date: 20150408
  Receipt Date: 20150408
  Transmission Date: 20150821
  Serious: No
  Sender: FDA-Public Use
  Company Number: US-SA-2014SA059741

PATIENT
  Age: 25 Year
  Sex: Female
  Weight: 70.3 kg

DRUGS (1)
  1. ALLEGRA [Suspect]
     Active Substance: FEXOFENADINE HYDROCHLORIDE
     Indication: MULTIPLE ALLERGIES
     Route: 048

REACTIONS (5)
  - Headache [Unknown]
  - Pruritus [Unknown]
  - Extra dose administered [Unknown]
  - Weight increased [Unknown]
  - Abdominal distension [Unknown]
